FAERS Safety Report 7626761-6 (Version None)
Quarter: 2011Q3

REPORT INFORMATION
  Report Type: 
  Country: None (occurrence: None)
  Receive Date: 20110721
  Receipt Date: 20110712
  Transmission Date: 20111222
  Serious: Yes (Other)
  Sender: FDA-Public Use
  Company Number: US-US-EMD SERONO, INC.-7071098

PATIENT
  Sex: Female

DRUGS (1)
  1. REBIF [Suspect]
     Indication: MULTIPLE SCLEROSIS
     Route: 058
     Dates: start: 20060713

REACTIONS (6)
  - ALOPECIA [None]
  - INJECTION SITE ERYTHEMA [None]
  - THYROID FUNCTION TEST ABNORMAL [None]
  - ARTHRALGIA [None]
  - POLYMENORRHOEA [None]
  - INJECTION SITE PAIN [None]
